FAERS Safety Report 7773906-3 (Version None)
Quarter: 2011Q3

REPORT INFORMATION
  Report Type: 
  Country: None (occurrence: None)
  Receive Date: 20110923
  Receipt Date: 20110916
  Transmission Date: 20111222
  Serious: Yes (Hospitalization)
  Sender: FDA-Public Use
  Company Number: GB-PFIZER INC-2011221199

PATIENT
  Age: 10 Year
  Sex: Female
  Weight: 29 kg

DRUGS (11)
  1. CEFOTAXIME [Concomitant]
  2. SALBUTAMOL [Concomitant]
  3. METRONIDAZOLE [Concomitant]
  4. SUXAMETHONIUM [Concomitant]
  5. ONDANSETRON HCL [Suspect]
     Indication: PROCEDURAL NAUSEA
     Dosage: 4 MG, UNK
     Route: 042
     Dates: start: 20110907, end: 20110907
  6. IBUPROFEN [Concomitant]
  7. VECURONIUM BROMIDE [Concomitant]
  8. DICLOFENAC [Concomitant]
  9. THIOPENTAL SODIUM [Concomitant]
  10. MORPHINE [Concomitant]
  11. PARACETAMOL [Concomitant]

REACTIONS (7)
  - BLOOD GLUCOSE DECREASED [None]
  - VISUAL IMPAIRMENT [None]
  - MALAISE [None]
  - CYANOSIS [None]
  - LOSS OF CONSCIOUSNESS [None]
  - SYNCOPE [None]
  - CHEST DISCOMFORT [None]
